FAERS Safety Report 15351992 (Version 2)
Quarter: 2018Q3

REPORT INFORMATION
  Report Type: Report from Study
  Country: US (occurrence: US)
  Receive Date: 20180905
  Receipt Date: 20180912
  Transmission Date: 20181010
  Serious: No
  Sender: FDA-Public Use
  Company Number: PHEH2018US035870

PATIENT
  Age: 47 Year
  Sex: Female

DRUGS (2)
  1. COSENTYX [Suspect]
     Active Substance: SECUKINUMAB
     Indication: PSORIASIS
     Dosage: 300 MG, QW
     Route: 058
     Dates: start: 20180817
  2. COSENTYX [Suspect]
     Active Substance: SECUKINUMAB
     Dosage: 300 MG, QW
     Route: 058
     Dates: start: 20180824

REACTIONS (9)
  - Hypersensitivity [Recovered/Resolved]
  - Ocular hyperaemia [Unknown]
  - Lip pruritus [Unknown]
  - Eyelid rash [Unknown]
  - Eye swelling [Recovered/Resolved]
  - Lip swelling [Unknown]
  - Oral discomfort [Unknown]
  - Rash [Recovered/Resolved]
  - Eye pruritus [Unknown]

NARRATIVE: CASE EVENT DATE: 20180817
